FAERS Safety Report 5190074-5 (Version None)
Quarter: 2006Q4

REPORT INFORMATION
  Report Type: 
  Country: None (occurrence: None)
  Receive Date: 20061222
  Receipt Date: 20061211
  Transmission Date: 20070319
  Serious: Yes (Other)
  Sender: FDA-Public Use
  Company Number: PHFR2006GB03627

PATIENT
  Sex: Male

DRUGS (3)
  1. TEGRETOL [Suspect]
     Route: 065
  2. DIPYRIDAMOLE [Concomitant]
     Route: 065
  3. INSULIN [Concomitant]
     Route: 065

REACTIONS (1)
  - MYOPATHY [None]
